FAERS Safety Report 10155012 (Version 1)
Quarter: 2014Q2

REPORT INFORMATION
  Report Type: Spontaneous
  Country: US (occurrence: US)
  Receive Date: 20140506
  Receipt Date: 20140506
  Transmission Date: 20141212
  Serious: No
  Sender: FDA-Public Use
  Company Number: US-009507513-1405USA001710

PATIENT
  Sex: Female

DRUGS (3)
  1. NOXAFIL [Suspect]
     Indication: ANTIFUNGAL PROPHYLAXIS
     Dosage: 200 MG, BID
     Route: 048
  2. NOXAFIL [Suspect]
     Dosage: 300 MG, QD
     Route: 048
  3. NOXAFIL [Suspect]
     Dosage: 100 MG, QD
     Route: 048

REACTIONS (3)
  - Skin exfoliation [Recovering/Resolving]
  - Arthralgia [Recovering/Resolving]
  - Alopecia [Recovering/Resolving]
